FAERS Safety Report 7960544-2 (Version None)
Quarter: 2011Q4

REPORT INFORMATION
  Report Type: 
  Country: None (occurrence: None)
  Receive Date: 20111206
  Receipt Date: 20111128
  Transmission Date: 20120403
  Serious: Yes (Hospitalization)
  Sender: FDA-Public Use
  Company Number: PHHY2011JP95785

PATIENT
  Age: 45 Year
  Sex: Male

DRUGS (3)
  1. DICLOFENAC SODIUM [Suspect]
  2. CEFTRIAXONE SODIUM [Suspect]
     Route: 042
  3. LOXOPROFEN SODIUM [Suspect]

REACTIONS (9)
  - ECZEMA [None]
  - ACQUIRED HAEMOPHILIA [None]
  - PRURITUS [None]
  - RASH [None]
  - BLOOD ALKALINE PHOSPHATASE INCREASED [None]
  - URTICARIA [None]
  - ACTIVATED PARTIAL THROMBOPLASTIN TIME PROLONGED [None]
  - BLISTER [None]
  - EPISTAXIS [None]
